FAERS Safety Report 6229058-4 (Version None)
Quarter: 2009Q2

REPORT INFORMATION
  Report Type: 
  Country: None (occurrence: None)
  Receive Date: 20090601
  Receipt Date: 20081007
  Transmission Date: 20091009
  Serious: Yes (Death, Hospitalization, Other)
  Sender: FDA-Public Use
  Company Number: US200810002036

PATIENT
  Age: 79 Year
  Sex: Female

DRUGS (12)
  1. BYETTA [Suspect]
     Indication: DIABETES MELLITUS
     Dosage: 10 UG, 2/D, SUBCUTANEOUS
     Route: 058
     Dates: start: 20050617, end: 20080511
  2. EXENATIDE PEN [Concomitant]
  3. ALLOPURINOL [Concomitant]
  4. TOPROL-XL [Concomitant]
  5. ALTACE [Concomitant]
  6. FUROSEMIDE INTENSOL [Concomitant]
  7. GLYBURIDE [Concomitant]
  8. LANTUS [Concomitant]
  9. SIMVASTATIN [Concomitant]
  10. ISOSORBIDE [Concomitant]
  11. HYDROCODONE BITARTRATE [Concomitant]
  12. PLAVIX [Concomitant]

REACTIONS (6)
  - DEATH [None]
  - DYSPHAGIA [None]
  - DYSURIA [None]
  - PANCREATIC CARCINOMA STAGE IV [None]
  - THROMBOSIS [None]
  - VOMITING [None]
